FAERS Safety Report 23461680 (Version 1)
Quarter: 2024Q1

REPORT INFORMATION
  Report Type: Spontaneous
  Country: US (occurrence: US)
  Receive Date: 20240131
  Receipt Date: 20240131
  Transmission Date: 20240410
  Serious: No
  Sender: FDA-Public Use
  Company Number: US-SANOFI-01918284

PATIENT
  Age: 68 Year
  Sex: Female

DRUGS (1)
  1. PHISOHEX [Suspect]
     Active Substance: HEXACHLOROPHENE
     Dosage: UNK

REACTIONS (4)
  - Gait disturbance [Unknown]
  - Joint swelling [Unknown]
  - Expired product administered [Unknown]
  - Therapeutic response unexpected [Unknown]
